FAERS Safety Report 16112146 (Version 1)
Quarter: 2019Q2

REPORT INFORMATION
  Report Type: Spontaneous
  Country: US (occurrence: US)
  Receive Date: 20190323
  Receipt Date: 20190323
  Transmission Date: 20190711
  Serious: Yes (Life-Threatening, Hospitalization, Other)
  Sender: FDA-Public Use
  Company Number: None

PATIENT
  Age: 49 Year
  Sex: Male
  Weight: 90 kg

DRUGS (6)
  1. OMBITASVIR [Suspect]
     Active Substance: OMBITASVIR
  2. DASABUVIR [Suspect]
     Active Substance: DASABUVIR
  3. MIL THISTLE [Concomitant]
  4. PARITAPREVIR [Suspect]
     Active Substance: PARITAPREVIR
  5. RITONAVIR. [Suspect]
     Active Substance: RITONAVIR
  6. VIEKIRA PAK [Suspect]
     Active Substance: DASABUVIR\OMBITASVIR\PARITAPREVIR\RITONAVIR
     Indication: HEPATITIS C
     Dosage: ?          QUANTITY:4 CAPSULE(S);?
     Route: 048

REACTIONS (3)
  - Hepatic cirrhosis [None]
  - Hepatic failure [None]
  - Liver injury [None]

NARRATIVE: CASE EVENT DATE: 20170912
